FAERS Safety Report 8842937 (Version 2)
Quarter: 2012Q4

REPORT INFORMATION
  Report Type: Report from Study
  Country: JP (occurrence: JP)
  Receive Date: 20121016
  Receipt Date: 20121231
  Transmission Date: 20130627
  Serious: Yes (Other)
  Sender: FDA-Public Use
  Company Number: JP-VERTEX PHARMACEUTICAL INC.-AE-2012-009412

PATIENT
  Age: 75 Year
  Sex: Male

DRUGS (32)
  1. VX-950 (TELAPREVIR) [Suspect]
     Indication: CHRONIC HEPATITIS C
     Dosage: 1500 mg, qd
     Route: 048
     Dates: start: 20120403, end: 20120603
  2. VX-950 (TELAPREVIR) [Suspect]
     Dosage: 1000 mg, qd
     Route: 048
     Dates: start: 20120604, end: 20120625
  3. RIBAVIRIN [Suspect]
     Indication: CHRONIC HEPATITIS C
     Dosage: 800 mg, qd
     Route: 048
     Dates: start: 20120403, end: 20120423
  4. RIBAVIRIN [Suspect]
     Dosage: 600 mg, qd
     Route: 048
     Dates: start: 20120424, end: 20120603
  5. RIBAVIRIN [Suspect]
     Dosage: 200 mg, qd
     Route: 048
     Dates: start: 20120604, end: 20120722
  6. RIBAVIRIN [Suspect]
     Dosage: 400 mg, qd
     Route: 048
     Dates: start: 20120723, end: 20120826
  7. RIBAVIRIN [Suspect]
     Dosage: 600 mg, qd
     Route: 048
     Dates: start: 20120827
  8. PEGINTERFERON ALFA-2B [Suspect]
     Indication: CHRONIC HEPATITIS C
     Dosage: 1.5 ?g/kg, qw
     Route: 058
     Dates: start: 20120403
  9. BLOPRESS [Concomitant]
     Dosage: 8 mg, qd
     Route: 048
  10. BLOPRESS [Concomitant]
     Dosage: 8 mg, qd
     Route: 048
     Dates: start: 20120625, end: 20120924
  11. NORVASC [Concomitant]
     Dosage: 5 mg, qd
     Route: 048
  12. NORVASC [Concomitant]
     Dosage: 5 mg, qd
     Route: 048
     Dates: start: 20120625, end: 20120924
  13. ZYLORIC [Concomitant]
     Route: 048
     Dates: end: 20120424
  14. FEBURIC [Concomitant]
     Dosage: 20 mg, qd
     Route: 048
     Dates: start: 20120625, end: 20120924
  15. PARIET [Concomitant]
     Dosage: 10 mg, qd
     Route: 048
  16. PARIET [Concomitant]
     Dosage: 10 mg, qd
     Route: 048
     Dates: start: 20120625, end: 20120924
  17. MYSLEE [Concomitant]
     Dosage: 10 mg, qd
     Route: 048
     Dates: start: 20120625, end: 20120924
  18. GASLON N [Concomitant]
     Dosage: 4 mg, qd
     Route: 048
     Dates: start: 20120625, end: 20120924
  19. DEXAMETHASONE [Concomitant]
     Dosage: 5 g, qd
     Route: 049
     Dates: start: 20120625, end: 20120625
  20. DEXAMETHASONE [Concomitant]
     Dosage: 5 g, qd
     Route: 049
     Dates: start: 20120702, end: 20120702
  21. DEXAMETHASONE [Concomitant]
     Dosage: 5 g, qd
     Route: 049
     Dates: start: 20120820, end: 20120820
  22. DEXAMETHASONE [Concomitant]
     Dosage: 5 g, qd
     Route: 049
     Dates: start: 20120827, end: 20120827
  23. DEXAMETHASONE [Concomitant]
     Dosage: 5 g, qd
     Route: 049
     Dates: start: 20120903, end: 20120903
  24. DEXAMETHASONE [Concomitant]
     Dosage: 5 g, qd
     Route: 049
     Dates: start: 20120910, end: 20120910
  25. DEXAMETHASONE [Concomitant]
     Dosage: 5 g, qd
     Route: 049
     Dates: start: 20120918, end: 20120918
  26. LOXOPROFEN                         /00890702/ [Concomitant]
     Dosage: 60 mg/once at the time of pyexia, total of 7 doses
     Route: 048
     Dates: start: 20120625, end: 20120625
  27. LOXOPROFEN                         /00890702/ [Concomitant]
     Dosage: 60 mg/once at the time of pyexia, total of 7 doses
     Route: 048
     Dates: start: 20120702, end: 20120702
  28. REBAMIPIDE [Concomitant]
     Dosage: 100 mg/once at the time of pyexia, total of 7 doses
     Route: 048
     Dates: start: 20120625, end: 20120625
  29. REBAMIPIDE [Concomitant]
     Dosage: 100 mg/once at the time of pyexia, total of 7 doses
     Route: 048
     Dates: start: 20120702, end: 20120702
  30. OXAROL [Concomitant]
     Dosage: 10 g, qd
     Route: 061
     Dates: start: 20120820, end: 20120820
  31. MYSER                              /01249201/ [Concomitant]
     Dosage: 10 g, qd
     Route: 061
     Dates: start: 20120827, end: 20120827
  32. PATELL [Concomitant]
     Dosage: 1 Sheet
     Route: 061
     Dates: start: 20120827, end: 20120924

REACTIONS (4)
  - Renal impairment [Recovered/Resolved]
  - Retinopathy [Unknown]
  - Haemoglobin decreased [Not Recovered/Not Resolved]
  - Retinopathy [Recovered/Resolved]
